FAERS Safety Report 4325937-3 (Version None)
Quarter: 2004Q1

REPORT INFORMATION
  Report Type: 
  Country: None (occurrence: None)
  Receive Date: 20040324
  Receipt Date: 20040311
  Transmission Date: 20041129
  Serious: Yes (Hospitalization, Other)
  Sender: FDA-Public Use
  Company Number: 2004003040

PATIENT
  Sex: Female

DRUGS (10)
  1. LIPITOR [Suspect]
     Indication: CARDIOVASCULAR DISORDER
     Dosage: 80 MG (DAILY), ORAL
     Route: 048
     Dates: end: 20030214
  2. LIPITOR [Suspect]
     Indication: CORONARY ARTERY DISEASE
     Dosage: 80 MG (DAILY), ORAL
     Route: 048
     Dates: end: 20030214
  3. LIPITOR [Suspect]
     Indication: HYPERLIPIDAEMIA
     Dosage: 80 MG (DAILY), ORAL
     Route: 048
     Dates: end: 20030214
  4. INSULIN [Concomitant]
  5. FUROSEMIDE [Concomitant]
  6. VALSARTAN (VALSARTAN) [Concomitant]
  7. CITALOPRAM HYDROBROMIDE (CITALOPRAM HYDROBROMIDE) [Concomitant]
  8. ACETYLSALICYLIC ACID SRT [Concomitant]
  9. ESCITALOPRAM (ESCITALOPRAM) [Concomitant]
  10. OXYCOCET (PARACETAMOL, OXYCODONE HYDROCHLORIDE) [Concomitant]

REACTIONS (9)
  - ANOREXIA [None]
  - DIFFICULTY IN WALKING [None]
  - FOOD AVERSION [None]
  - GENERAL PHYSICAL HEALTH DETERIORATION [None]
  - HEPATIC CIRRHOSIS [None]
  - HEPATIC FIBROSIS [None]
  - HEPATITIS GRANULOMATOUS [None]
  - MUSCLE DISORDER [None]
  - PAIN [None]
